FAERS Safety Report 18669947 (Version 1)
Quarter: 2020Q4

REPORT INFORMATION
  Report Type: Spontaneous
  Country: CN (occurrence: CN)
  Receive Date: 20201228
  Receipt Date: 20201228
  Transmission Date: 20210114
  Serious: Yes (Hospitalization, Other)
  Sender: FDA-Public Use
  Company Number: CN-BAYER-2020-283523

PATIENT
  Age: 39 Year
  Sex: Male
  Weight: 53 kg

DRUGS (4)
  1. ROCEPHIN [Suspect]
     Active Substance: CEFTRIAXONE SODIUM
     Indication: PERITONITIS
     Dosage: 2 G, QD
     Route: 041
     Dates: start: 20201205, end: 20201215
  2. SODIUM CHLORIDE. [Concomitant]
     Active Substance: SODIUM CHLORIDE
  3. NEXAVAR [Suspect]
     Active Substance: SORAFENIB
     Indication: HEPATIC CANCER
     Dosage: 0.4 G, BID
     Route: 048
     Dates: start: 20201129, end: 20201215
  4. ROCEPHIN [Suspect]
     Active Substance: CEFTRIAXONE SODIUM
     Indication: ANTI-INFECTIVE THERAPY

REACTIONS (4)
  - Peritonitis [None]
  - Feeling cold [None]
  - Diarrhoea [Recovered/Resolved]
  - Pyrexia [None]

NARRATIVE: CASE EVENT DATE: 20201205
